FAERS Safety Report 12489486 (Version 2)
Quarter: 2016Q3

REPORT INFORMATION
  Report Type: Report from Study
  Country: ES (occurrence: ES)
  Receive Date: 20160622
  Receipt Date: 20160725
  Transmission Date: 20161109
  Serious: Yes (Hospitalization)
  Sender: FDA-Public Use
  Company Number: ES-JNJFOC-20160610402

PATIENT

DRUGS (1)
  1. XEPLION [Suspect]
     Active Substance: PALIPERIDONE PALMITATE
     Indication: PSYCHOTIC DISORDER
     Dosage: AVERAGE DOSE: 99.5 MG AS 1 ST YEAR AND 101.2 2ND YEAR
     Route: 030

REACTIONS (7)
  - Metabolic syndrome [Unknown]
  - Poisoning [Unknown]
  - Adverse drug reaction [Unknown]
  - Drug ineffective [Unknown]
  - Hospitalisation [Unknown]
  - Sedation [Unknown]
  - Weight increased [Unknown]
